FAERS Safety Report 20863104 (Version 8)
Quarter: 2023Q1

REPORT INFORMATION
  Report Type: Report from Study
  Country: US (occurrence: US)
  Receive Date: 20220523
  Receipt Date: 20230327
  Transmission Date: 20230418
  Serious: No
  Sender: FDA-Public Use
  Company Number: US-NOVARTISTESTPH-NVSC2022US118015

PATIENT
  Sex: Female

DRUGS (1)
  1. COSENTYX [Suspect]
     Active Substance: SECUKINUMAB
     Indication: Psoriasis
     Dosage: 150 MG, QMO (EVERY FOUR WEEKS)
     Route: 058

REACTIONS (6)
  - Pain [Unknown]
  - Joint swelling [Unknown]
  - Peripheral swelling [Unknown]
  - Arthralgia [Unknown]
  - Pain in extremity [Unknown]
  - Psoriasis [Unknown]
